FAERS Safety Report 5145541-7 (Version None)
Quarter: 2006Q4

REPORT INFORMATION
  Report Type: 
  Country: None (occurrence: None)
  Receive Date: 20061101
  Receipt Date: 20061019
  Transmission Date: 20070319
  Serious: Yes (Death)
  Sender: FDA-Public Use
  Company Number: 2006SP004636

PATIENT
  Age: 53 Year
  Sex: Male

DRUGS (2)
  1. TEMODAR [Suspect]
     Indication: CEREBRAL DISORDER
     Dosage: 160 MG; QD; PO
     Route: 048
  2. TEMODAR [Suspect]
     Indication: MALIGNANT MELANOMA
     Dosage: 160 MG; QD; PO
     Route: 048

REACTIONS (1)
  - DISEASE PROGRESSION [None]
